FAERS Safety Report 25947601 (Version 1)
Quarter: 2025Q4

REPORT INFORMATION
  Report Type: Spontaneous
  Country: GB (occurrence: GB)
  Receive Date: 20251022
  Receipt Date: 20251022
  Transmission Date: 20260118
  Serious: Yes (Hospitalization)
  Sender: MYLAN
  Company Number: GB-MYLANLABS-2025M1088301

PATIENT
  Age: 35 Year
  Sex: Female

DRUGS (13)
  1. IMATINIB [Suspect]
     Active Substance: IMATINIB
     Indication: Mastocytosis
     Dosage: UNK
  2. IMATINIB [Suspect]
     Active Substance: IMATINIB
     Indication: Postural orthostatic tachycardia syndrome
  3. PROPRANOLOL [Suspect]
     Active Substance: PROPRANOLOL HYDROCHLORIDE
     Indication: Mastocytosis
     Dosage: UNK
  4. PROPRANOLOL [Suspect]
     Active Substance: PROPRANOLOL HYDROCHLORIDE
     Indication: Postural orthostatic tachycardia syndrome
  5. FEXOFENADINE [Suspect]
     Active Substance: FEXOFENADINE HYDROCHLORIDE
     Indication: Mastocytosis
     Dosage: UNK
  6. FEXOFENADINE [Suspect]
     Active Substance: FEXOFENADINE HYDROCHLORIDE
     Indication: Postural orthostatic tachycardia syndrome
  7. EPIPEN [Suspect]
     Active Substance: EPINEPHRINE
     Indication: Mastocytosis
     Dosage: UNK
  8. EPIPEN [Suspect]
     Active Substance: EPINEPHRINE
     Indication: Postural orthostatic tachycardia syndrome
  9. PREDNISOLONE [Suspect]
     Active Substance: PREDNISOLONE
     Indication: Mastocytosis
     Dosage: UNK
  10. PREDNISOLONE [Suspect]
     Active Substance: PREDNISOLONE
     Indication: Postural orthostatic tachycardia syndrome
  11. MIDODRINE [Suspect]
     Active Substance: MIDODRINE
     Indication: Syncope
     Dosage: UNK
  12. MIDODRINE [Suspect]
     Active Substance: MIDODRINE
     Indication: Postural orthostatic tachycardia syndrome
  13. MIDODRINE [Suspect]
     Active Substance: MIDODRINE
     Indication: Mastocytosis

REACTIONS (3)
  - Drug ineffective [Unknown]
  - Maternal exposure during pregnancy [Unknown]
  - Off label use [Unknown]
